FAERS Safety Report 10916686 (Version 1)
Quarter: 2015Q1

REPORT INFORMATION
  Report Type: Spontaneous
  Country: KR (occurrence: None)
  Receive Date: 20150311
  Receipt Date: 20150311
  Transmission Date: 20150721
  Serious: Yes (Other)
  Sender: FDA-Public Use
  Company Number: INT_00706_2015

PATIENT
  Age: 46 Year
  Sex: Male

DRUGS (6)
  1. CISPLATIN (CISPLATIN) (HQ SPECIALTY) [Suspect]
     Active Substance: CISPLATIN
     Indication: ADENOCARCINOMA GASTRIC
     Dosage: 11 CYCLES
  2. BEVACIZUMAB (BEVACIZUMAB) [Suspect]
     Active Substance: BEVACIZUMAB
     Indication: ADENOCARCINOMA GASTRIC
     Dosage: 11 CYCLES
  3. CAPECITABINE (CAPECITABINE) (CAPECITABINE) [Suspect]
     Active Substance: CAPECITABINE
     Indication: ADENOCARCINOMA GASTRIC
     Dosage: 11 CYCLES
  4. LEUCOVORIN [Suspect]
     Active Substance: LEUCOVORIN
     Indication: ADENOCARCINOMA GASTRIC
     Dosage: DF (NOT OTHERWISE SPECIFIED)
     Route: 042
  5. PACLITAXEL (PACLITAXEL) (HQ SPECIALTY) [Suspect]
     Active Substance: PACLITAXEL
     Indication: ADENOCARCINOMA GASTRIC
     Dosage: DF (NOT OTHERWISE SPECIFIED)
     Route: 042
  6. FLUOROURACIL (FLUOROURACIL) [Suspect]
     Active Substance: FLUOROURACIL
     Indication: ADENOCARCINOMA GASTRIC
     Dosage: DF (NOT OTHERWISE SPECIFIED)
     Route: 042

REACTIONS (5)
  - Gingival disorder [None]
  - Candida infection [None]
  - Skin exfoliation [None]
  - Disease progression [None]
  - Gingivitis [None]
